FAERS Safety Report 10802322 (Version 3)
Quarter: 2015Q1

REPORT INFORMATION
  Report Type: Spontaneous
  Country: JP (occurrence: JP)
  Receive Date: 20150217
  Receipt Date: 20150303
  Transmission Date: 20150721
  Serious: Yes (Hospitalization, Other)
  Sender: FDA-Public Use
  Company Number: JP-PFIZER INC-2015060755

PATIENT
  Age: 53 Year
  Sex: Female

DRUGS (4)
  1. MINOPHAGEN C [Concomitant]
     Indication: DRUG-INDUCED LIVER INJURY
     Dosage: 80 MG, DAILY
     Route: 042
     Dates: start: 20150206, end: 20150209
  2. ANAFRANIL [Concomitant]
     Active Substance: CLOMIPRAMINE HYDROCHLORIDE
     Indication: DEPRESSION
     Dosage: 225 MG, DAILY
     Route: 048
     Dates: start: 20150205, end: 20150205
  3. TOFRANIL [Concomitant]
     Active Substance: IMIPRAMINE HYDROCHLORIDE
     Indication: DEPRESSION
     Dosage: 150 MG TO 300 MG
     Route: 048
     Dates: start: 20150106, end: 20150204
  4. SOLU-CORTEF [Suspect]
     Active Substance: HYDROCORTISONE SODIUM SUCCINATE
     Indication: CIRCULATORY COLLAPSE
     Dosage: 500 MG, DAILY
     Route: 042
     Dates: start: 20150206, end: 20150209

REACTIONS (1)
  - Subarachnoid haemorrhage [Unknown]
